FAERS Safety Report 8352725-3 (Version None)
Quarter: 2012Q2

REPORT INFORMATION
  Report Type: 
  Country: None (occurrence: None)
  Receive Date: 20120511
  Receipt Date: 20120426
  Transmission Date: 20120825
  Serious: Yes (Hospitalization)
  Sender: FDA-Public Use
  Company Number: FR-VERTEX PHARMACEUTICALS INC.-000000000000000622

PATIENT
  Sex: Male

DRUGS (9)
  1. CEFIXIME [Concomitant]
     Indication: URINARY TRACT INFECTION
  2. ALDACTONE [Concomitant]
     Indication: OEDEMA
  3. PEGASYS [Concomitant]
     Indication: HEPATITIS C
     Dosage: DOSAGE FORM: INJECTION
     Route: 058
     Dates: start: 20110819, end: 20111021
  4. LANTUS [Concomitant]
     Indication: DIABETES MELLITUS
  5. NOVORAPID [Concomitant]
     Indication: DIABETES MELLITUS
  6. COPEGUS [Concomitant]
     Indication: HEPATITIS C
     Dosage: DOSAGE FORM: TABLET
     Route: 048
     Dates: start: 20110819, end: 20111021
  7. TELAPREVIR [Suspect]
     Indication: HEPATITIS C
     Dosage: DOSAGE FORM: TABLET
     Route: 048
     Dates: start: 20110819, end: 20111021
  8. LASIX [Concomitant]
     Indication: OEDEMA
  9. POTASSIUM CHLORIDE [Concomitant]
     Indication: HYPOKALAEMIA

REACTIONS (3)
  - PRURIGO [None]
  - ANAEMIA [None]
  - THROMBOCYTOPENIA [None]
